FAERS Safety Report 5282933-X (Version None)
Quarter: 2007Q2

REPORT INFORMATION
  Report Type: 
  Country: None (occurrence: None)
  Receive Date: 20070402
  Receipt Date: 20070319
  Transmission Date: 20071010
  Serious: Yes (Hospitalization, Other)
  Sender: FDA-Public Use
  Company Number: PHBS2007JP04670

PATIENT
  Age: 77 Year
  Sex: Female
  Weight: 34 kg

DRUGS (8)
  1. TEGRETOL [Suspect]
     Indication: EPILEPSY
     Route: 048
     Dates: start: 19901001, end: 19950601
  2. TEGRETOL [Suspect]
     Route: 048
     Dates: start: 19951004
  3. PHENYTOIN [Suspect]
     Indication: EPILEPSY
     Route: 048
     Dates: start: 19950601, end: 19951004
  4. VALPROATE SODIUM [Concomitant]
     Indication: EPILEPSY
     Route: 048
     Dates: start: 19950601
  5. AMEZINIUM METILSULFATE [Concomitant]
     Route: 048
  6. DIGOXIN [Concomitant]
     Route: 048
  7. RANITIDINE HYDROCHLORIDE [Concomitant]
     Route: 048
  8. ALFACALCIDOL [Concomitant]
     Route: 048

REACTIONS (15)
  - ALANINE AMINOTRANSFERASE INCREASED [None]
  - ANTI-PLATELET ANTIBODY POSITIVE [None]
  - ASPARTATE AMINOTRANSFERASE INCREASED [None]
  - BIOPSY LIVER ABNORMAL [None]
  - BLISTER [None]
  - BLOOD IMMUNOGLOBULIN G DECREASED [None]
  - DUODENAL ULCER PERFORATION [None]
  - HAEMODIALYSIS [None]
  - LIVER DISORDER [None]
  - PHOTOSENSITIVITY REACTION [None]
  - PIGMENTATION DISORDER [None]
  - PORPHYRIA NON-ACUTE [None]
  - PORPHYRINS URINE INCREASED [None]
  - RENAL FAILURE CHRONIC [None]
  - THROMBOCYTOPENIC PURPURA [None]
